FAERS Safety Report 8705238 (Version 4)
Quarter: 2012Q4

REPORT INFORMATION
  Report Type: 
  Country: US (occurrence: US)
  Receive Date: 20120803
  Receipt Date: 20121129
  Transmission Date: 20130627
  Serious: Yes (Hospitalization, Other)
  Sender: FDA-Public Use
  Company Number: US-009507513-1208USA000208

PATIENT

DRUGS (1)
  1. NUVARING [Suspect]
     Indication: CONTRACEPTION
     Dosage: In 3 weeks, out 1 week
     Route: 067
     Dates: start: 20100325, end: 20101104

REACTIONS (30)
  - Respiratory failure [Recovered/Resolved]
  - Cardiac arrest [Recovered/Resolved]
  - Pulmonary embolism [Recovered/Resolved]
  - Deep vein thrombosis [Not Recovered/Not Resolved]
  - Depression [Not Recovered/Not Resolved]
  - Anxiety [Not Recovered/Not Resolved]
  - Pneumonia [Recovered/Resolved]
  - Varicose vein [Unknown]
  - Insomnia [Unknown]
  - Stress [Unknown]
  - Haemangioma of liver [Not Recovered/Not Resolved]
  - Post thrombotic syndrome [Unknown]
  - Cognitive disorder [Unknown]
  - Motor dysfunction [Recovering/Resolving]
  - Joint instability [Unknown]
  - Pulmonary infarction [Unknown]
  - Hypotension [Unknown]
  - Transaminases increased [Unknown]
  - Shock [Unknown]
  - Convulsion [Unknown]
  - Hypokalaemia [Unknown]
  - Hyperglycaemia [Unknown]
  - Cardiac disorder [Unknown]
  - Amnesia [Recovering/Resolving]
  - Treatment noncompliance [Unknown]
  - Venous insufficiency [Unknown]
  - Vascular insufficiency [Not Recovered/Not Resolved]
  - Fall [Unknown]
  - Coma [Unknown]
  - Hepatic enzyme increased [Unknown]
